FAERS Safety Report 25569456 (Version 2)
Quarter: 2025Q3

REPORT INFORMATION
  Report Type: Spontaneous
  Country: EU (occurrence: EU)
  Receive Date: 20250716
  Receipt Date: 20250723
  Transmission Date: 20251020
  Serious: Yes (Death, Other)
  Sender: PURDUE
  Company Number: EU-NAPPMUNDI-GBR-2025-0127226

PATIENT
  Age: 24 Year
  Sex: Male

DRUGS (5)
  1. MORPHINE SULFATE [Suspect]
     Active Substance: MORPHINE SULFATE
     Indication: Neuralgia
     Route: 037
  2. PROPOFOL [Concomitant]
     Active Substance: PROPOFOL
     Indication: Pain
     Route: 065
  3. MIDAZOLAM [Concomitant]
     Active Substance: MIDAZOLAM
     Indication: Pain
     Route: 065
  4. MIDAZOLAM [Concomitant]
     Active Substance: MIDAZOLAM
     Indication: Anxiety
  5. ESKETAMINE [Concomitant]
     Active Substance: ESKETAMINE
     Indication: Pain
     Route: 065

REACTIONS (8)
  - Neoplasm progression [Fatal]
  - Multiple organ dysfunction syndrome [Fatal]
  - General physical health deterioration [Not Recovered/Not Resolved]
  - Anxiety [Not Recovered/Not Resolved]
  - Restlessness [Recovered/Resolved]
  - Fear of death [Recovered/Resolved]
  - Insomnia [Recovered/Resolved]
  - Inadequate analgesia [Unknown]
